FAERS Safety Report 14417587 (Version 1)
Quarter: 2018Q1

REPORT INFORMATION
  Report Type: Not Available
  Country: US (occurrence: US)
  Receive Date: 20180122
  Receipt Date: 20180122
  Transmission Date: 20180509
  Serious: Yes (Hospitalization)
  Sender: FDA-Public Use
  Company Number: US-ANIPHARMA-2018-US-000563

PATIENT
  Age: 33 Year
  Sex: Male

DRUGS (1)
  1. LITHIUM CARBONATE (NON-SPECIFIC) [Suspect]
     Active Substance: LITHIUM

REACTIONS (2)
  - Cerebellar atrophy [Not Recovered/Not Resolved]
  - Cerebellar syndrome [Unknown]
